FAERS Safety Report 8009434-X (Version None)
Quarter: 2011Q4

REPORT INFORMATION
  Report Type: 
  Country: None (occurrence: None)
  Receive Date: 20111227
  Receipt Date: 20111220
  Transmission Date: 20120403
  Serious: No
  Sender: FDA-Public Use
  Company Number: US-B.I. PHARMACEUTICALS,INC./RIDGEFIELD-2011-BP-28507BP

PATIENT
  Sex: Female

DRUGS (5)
  1. CALTRATE + VITAMIN D [Concomitant]
     Indication: SUPPLEMENTATION THERAPY
     Route: 048
  2. VITAMIN D [Concomitant]
     Indication: SUPPLEMENTATION THERAPY
     Route: 048
  3. MAGNESIUM HYDROXIDE TAB [Concomitant]
     Indication: PAIN
     Route: 048
  4. BUPROPION HCL [Concomitant]
     Indication: DEPRESSION
     Dosage: 300 MG
     Route: 048
  5. MICARDIS [Suspect]
     Indication: HYPERTENSION
     Dosage: 20 MG
     Route: 048
     Dates: start: 20050101

REACTIONS (4)
  - SWELLING FACE [None]
  - SINUSITIS [None]
  - PAROSMIA [None]
  - NAUSEA [None]
